APPROVED DRUG PRODUCT: FLUOCINONIDE
Active Ingredient: FLUOCINONIDE
Strength: 0.05%
Dosage Form/Route: SOLUTION;TOPICAL
Application: A072511 | Product #001
Applicant: TEVA PHARMACEUTICALS USA INC
Approved: Feb 7, 1989 | RLD: No | RS: No | Type: DISCN